FAERS Safety Report 5503266-X (Version None)
Quarter: 2007Q4

REPORT INFORMATION
  Report Type: 
  Country: None (occurrence: None)
  Receive Date: 20071031
  Receipt Date: 20071022
  Transmission Date: 20080405
  Serious: Yes (Other)
  Sender: FDA-Public Use
  Company Number: US-PFIZER INC-2007043847

PATIENT
  Sex: Male

DRUGS (1)
  1. CELEBREX [Suspect]
     Indication: BACK PAIN

REACTIONS (5)
  - BIPOLAR I DISORDER [None]
  - CHEST PAIN [None]
  - HYPERTENSION [None]
  - MUSCULAR WEAKNESS [None]
  - STOMACH DISCOMFORT [None]
